FAERS Safety Report 7553926-4 (Version None)
Quarter: 2011Q2

REPORT INFORMATION
  Report Type: 
  Country: None (occurrence: None)
  Receive Date: 20110617
  Receipt Date: 20110608
  Transmission Date: 20111010
  Serious: Yes (Hospitalization, Other)
  Sender: FDA-Public Use
  Company Number: US-ABBOTT-11P-163-0731708-00

PATIENT
  Age: 59 Year
  Sex: Female
  Weight: 50.848 kg

DRUGS (2)
  1. LEVOTHYROXINE SODIUM [Concomitant]
     Indication: HYPOTHYROIDISM
  2. HUMIRA [Suspect]
     Indication: CROHN'S DISEASE
     Dates: start: 20100101, end: 20110501

REACTIONS (8)
  - DIARRHOEA [None]
  - MALNUTRITION [None]
  - HYPOPHAGIA [None]
  - WEIGHT DECREASED [None]
  - ANAEMIA [None]
  - INTESTINAL STENOSIS [None]
  - BLOOD ALBUMIN DECREASED [None]
  - ABDOMINAL PAIN [None]
